FAERS Safety Report 9440182 (Version 1)
Quarter: 2013Q3

REPORT INFORMATION
  Report Type: Spontaneous
  Country: JP (occurrence: JP)
  Receive Date: 20130805
  Receipt Date: 20130805
  Transmission Date: 20140515
  Serious: Yes (Other)
  Sender: FDA-Public Use
  Company Number: PHHY2013JP083206

PATIENT
  Sex: Male

DRUGS (1)
  1. DIOVAN [Suspect]
     Route: 048
     Dates: start: 1995

REACTIONS (6)
  - Vascular graft occlusion [Unknown]
  - Melanocytic naevus [Unknown]
  - Erythema [Unknown]
  - Productive cough [Unknown]
  - Anxiety [Unknown]
  - Pruritus [Unknown]
